FAERS Safety Report 17730693 (Version 2)
Quarter: 2020Q2

REPORT INFORMATION
  Report Type: Spontaneous
  Country: DE (occurrence: DE)
  Receive Date: 20200430
  Receipt Date: 20200522
  Transmission Date: 20200714
  Serious: Yes (Life-Threatening, Hospitalization, Other)
  Sender: FDA-Public Use
  Company Number: DE-BAUSCH-BL-2020-012616

PATIENT
  Age: 52 Year
  Sex: Male
  Weight: 80 kg

DRUGS (5)
  1. PREDNISOLONE. [Suspect]
     Active Substance: PREDNISOLONE
     Indication: LIVER TRANSPLANT
     Dosage: 15 MG, ONCE DAILY IN THE MORNING
     Route: 048
  2. VALGANCICLOVIR. [Concomitant]
     Active Substance: VALGANCICLOVIR
     Indication: LIVER TRANSPLANT
     Dosage: 450 MG, THRICE WEEKLY (TOTAL DOSE: 1350 MG) 1X1 MONDAY-WEDNESDAY AND FRIDAY
     Route: 048
  3. PANTOPRAZOL [Concomitant]
     Active Substance: PANTOPRAZOLE SODIUM
     Indication: GASTROOESOPHAGEAL REFLUX DISEASE
     Dosage: 40 MG, ONCE DAILY (IN THE MORNING, DURATION GREATER THAN 3A)
     Route: 048
  4. PROGRAF [Suspect]
     Active Substance: TACROLIMUS
     Indication: LIVER TRANSPLANT
     Dosage: 3 MG, TWICE DAILY (3 CAPSULES IN THE MORNING AND 3 CAPSULES IN THE EVENING)
     Route: 048
  5. COTRIMOXAZOL [Concomitant]
     Active Substance: SULFAMETHOXAZOLE\TRIMETHOPRIM
     Indication: LIVER TRANSPLANT
     Dosage: 480 MG, ONCE DAILY (IN THE MORNING)
     Route: 048

REACTIONS (2)
  - Atrial fibrillation [Unknown]
  - Diabetic ketoacidosis [Not Recovered/Not Resolved]

NARRATIVE: CASE EVENT DATE: 202004
